FAERS Safety Report 6527662-7 (Version None)
Quarter: 2010Q1

REPORT INFORMATION
  Report Type: 
  Country: None (occurrence: None)
  Receive Date: 20100105
  Receipt Date: 20091229
  Transmission Date: 20100710
  Serious: Yes (Hospitalization)
  Sender: FDA-Public Use
  Company Number: IT-GENENTECH-296293

PATIENT
  Sex: Male

DRUGS (13)
  1. RITUXIMAB [Suspect]
     Indication: HODGKIN'S DISEASE
     Dosage: 700 MG, UNK
     Route: 042
     Dates: start: 20090825, end: 20091013
  2. VEPESID [Suspect]
     Indication: HODGKIN'S DISEASE
     Dosage: 380 MG, UNK
     Route: 042
     Dates: start: 20090817, end: 20091008
  3. VINCRISTINE SULFATE [Suspect]
     Indication: HODGKIN'S DISEASE
     Dosage: 2 MG, UNK
     Route: 042
     Dates: start: 20090824, end: 20091013
  4. ACICLOVIR [Concomitant]
     Indication: DRUG USE FOR UNKNOWN INDICATION
     Dosage: 1200 MG, UNK
     Route: 048
     Dates: start: 20090817, end: 20091017
  5. BLEOMICINA [Concomitant]
     Indication: DRUG USE FOR UNKNOWN INDICATION
     Dosage: DRUG REPORTED AS BLEOMICINA NIPPON KAYAKU
     Route: 042
     Dates: start: 20090824, end: 20091013
  6. DOXORUBICIN HCL [Concomitant]
     Indication: DRUG USE FOR UNKNOWN INDICATION
     Dosage: DRUG REPORTED AS DOXORUBICINA EBEWE
     Route: 042
     Dates: start: 20090817, end: 20091006
  7. ENDOXANA [Concomitant]
     Indication: DRUG USE FOR UNKNOWN INDICATION
     Dosage: DRUG REPORTED AS ENDOXAN BAXTER
     Route: 042
     Dates: start: 20090817, end: 20091006
  8. UROMITEXAN [Concomitant]
     Indication: DRUG USE FOR UNKNOWN INDICATION
     Dosage: 800 MG, UNK
     Route: 042
     Dates: start: 20090817, end: 20091006
  9. SOLU-MEDROL [Concomitant]
     Indication: DRUG USE FOR UNKNOWN INDICATION
     Dosage: 60 MG, UNK
     Route: 042
     Dates: start: 20090817, end: 20091008
  10. NATULAN [Concomitant]
     Indication: DRUG USE FOR UNKNOWN INDICATION
     Dosage: 150 MG, UNK
     Route: 048
     Dates: start: 20090817, end: 20091017
  11. DELTACORTENE [Concomitant]
     Indication: DRUG USE FOR UNKNOWN INDICATION
     Dosage: 25 MG, UNK
     Route: 048
     Dates: start: 20090817, end: 20091017
  12. GRANULOKINE [Concomitant]
     Indication: DRUG USE FOR UNKNOWN INDICATION
     Dosage: UNK
     Route: 058
     Dates: start: 20090817, end: 20091017
  13. ZYLORIC [Concomitant]
     Indication: DRUG USE FOR UNKNOWN INDICATION
     Dosage: 300 MG, UNK
     Route: 048
     Dates: start: 20090817, end: 20091017

REACTIONS (2)
  - FEBRILE NEUTROPENIA [None]
  - HERPES VIRUS INFECTION [None]
